FAERS Safety Report 23829076 (Version 4)
Quarter: 2025Q3

REPORT INFORMATION
  Report Type: Spontaneous
  Country: PK (occurrence: PK)
  Receive Date: 20240508
  Receipt Date: 20250708
  Transmission Date: 20251020
  Serious: Yes (Other)
  Sender: AMGEN
  Company Number: PK-PFIZER INC-202200304531

PATIENT
  Age: 28 Year
  Sex: Male
  Weight: 79 kg

DRUGS (23)
  1. ENBREL [Suspect]
     Active Substance: ETANERCEPT
     Indication: Takayasu^s arteritis
     Dosage: 50 MG, WEEKLY
     Route: 058
     Dates: start: 20220222
  2. ENBREL [Suspect]
     Active Substance: ETANERCEPT
     Indication: Rheumatoid arthritis
     Route: 065
  3. ENBREL [Suspect]
     Active Substance: ETANERCEPT
     Route: 058
  4. ENBREL [Suspect]
     Active Substance: ETANERCEPT
     Route: 058
  5. FOLIC ACID [Concomitant]
     Active Substance: FOLIC ACID
     Dosage: 5 MG, 2X/WEEK
  6. FOLIC ACID [Concomitant]
     Active Substance: FOLIC ACID
     Dosage: 5 MG, 2X/WEEK (EVERY MONDAY AND TUESDAY)
  7. DELTACORTRIL [Concomitant]
     Active Substance: PREDNISOLONE
     Dosage: 5+3+0, DAILY
  8. DELTACORTRIL [Concomitant]
     Active Substance: PREDNISOLONE
     Dosage: 5+2+0, DAILY
  9. DELTACORTRIL [Concomitant]
     Active Substance: PREDNISOLONE
     Dosage: 5+1+0, DAILY
  10. DELTACORTRIL [Concomitant]
     Active Substance: PREDNISOLONE
     Dosage: 5+0+0, DAILY
  11. DELTACORTRIL [Concomitant]
     Active Substance: PREDNISOLONE
     Dosage: 4+0+0, DAILY
  12. DELTACORTRIL [Concomitant]
     Active Substance: PREDNISOLONE
     Dosage: 3+0+0, DAILY
  13. DELTACORTRIL [Concomitant]
     Active Substance: PREDNISOLONE
     Dosage: 2+0+0, DAILY
  14. DELTACORTRIL [Concomitant]
     Active Substance: PREDNISOLONE
     Dosage: DAILY AFTER BREAKFAST, FOR WEEK THEN DAILY, DAILY
  15. Cytotrexate [Concomitant]
     Dosage: 7.5 MG, 2X/WEEK
  16. Cytotrexate [Concomitant]
  17. Cytotrexate [Concomitant]
  18. Cytotrexate [Concomitant]
  19. Cytotrexate [Concomitant]
  20. NORVASC [Concomitant]
     Active Substance: AMLODIPINE BESYLATE
     Indication: Hypertension
     Dosage: 1 DF, DAILY IN MORNING
  21. TONOFLEX P [Concomitant]
     Indication: Pain
  22. Amodip [Concomitant]
     Indication: Hypertension
     Dosage: 10 MG, 1X/DAY
  23. CIPRALEX [Concomitant]
     Active Substance: ESCITALOPRAM OXALATE
     Dosage: 5 MG, DAILY AFTER BREAKFAST

REACTIONS (7)
  - Takayasu^s arteritis [Unknown]
  - Lower respiratory tract infection [Unknown]
  - Off label use [Unknown]
  - Red blood cell sedimentation rate increased [Unknown]
  - C-reactive protein increased [Unknown]
  - Protein urine present [Unknown]
  - Urine analysis abnormal [Unknown]
